FAERS Safety Report 23027339 (Version 1)
Quarter: 2023Q4

REPORT INFORMATION
  Report Type: Spontaneous
  Country: IT (occurrence: IT)
  Receive Date: 20231004
  Receipt Date: 20231004
  Transmission Date: 20240109
  Serious: Yes (Hospitalization)
  Sender: FDA-Public Use
  Company Number: IT-AstraZeneca-2023A067299

PATIENT
  Age: 805 Month
  Sex: Male

DRUGS (5)
  1. PEMETREXED [Suspect]
     Active Substance: PEMETREXED
     Indication: Non-small cell lung cancer
     Dosage: 1000 MILLIGRAM (1 TOTAL)
     Route: 042
     Dates: start: 20230309, end: 20230309
  2. PEMETREXED [Suspect]
     Active Substance: PEMETREXED
     Dosage: 1000 MILLIGRAM (1 TOTAL)
     Route: 042
     Dates: start: 20230216, end: 20230216
  3. OSIMERTINIB [Suspect]
     Active Substance: OSIMERTINIB
     Indication: Non-small cell lung cancer
     Dosage: 80 MILLIGRAM, QD
     Route: 048
     Dates: start: 20210203, end: 20230215
  4. CARBOPLATIN [Suspect]
     Active Substance: CARBOPLATIN
     Indication: Non-small cell lung cancer
     Dosage: 479.9 MILLIGRAM (1 TOTAL)
     Route: 042
     Dates: start: 20230309, end: 20230309
  5. CARBOPLATIN [Suspect]
     Active Substance: CARBOPLATIN
     Dosage: 487 MILLIGRAM (1 TOTAL)
     Route: 042
     Dates: start: 20230216, end: 20230216

REACTIONS (2)
  - Respiratory failure [Recovered/Resolved]
  - Pulmonary sepsis [Recovered/Resolved]

NARRATIVE: CASE EVENT DATE: 20230316
